FAERS Safety Report 5028468-0 (Version None)
Quarter: 2006Q2

REPORT INFORMATION
  Report Type: 
  Country: None (occurrence: None)
  Receive Date: 20060617
  Receipt Date: 20060509
  Transmission Date: 20061013
  Serious: Yes (Other)
  Sender: FDA-Public Use
  Company Number: FR-GLAXOSMITHKLINE-B0423690A

PATIENT
  Age: 63 Year
  Sex: Male
  Weight: 73 kg

DRUGS (5)
  1. SERETIDE DISKUS [Suspect]
     Indication: ASTHMA
     Dosage: 1PUFF SEE DOSAGE TEXT
     Route: 055
     Dates: end: 20060401
  2. SINGULAIR [Concomitant]
     Indication: ASTHMA
     Dosage: 1TAB AT NIGHT
     Route: 048
     Dates: start: 20050101
  3. EQUANIL [Concomitant]
     Indication: INSOMNIA
     Dosage: 250MG PER DAY
     Dates: start: 20030210
  4. PIROXICAM [Concomitant]
     Indication: BACK PAIN
     Dosage: 20MG PER DAY
     Route: 048
     Dates: start: 20030106
  5. DI ALGIREX [Concomitant]
     Indication: BACK PAIN
     Dates: start: 20030106

REACTIONS (4)
  - BONE PAIN [None]
  - FRACTURE [None]
  - OSTEOPOROSIS [None]
  - SPINAL COMPRESSION FRACTURE [None]
